FAERS Safety Report 22154137 (Version 3)
Quarter: 2023Q2

REPORT INFORMATION
  Report Type: Spontaneous
  Country: US (occurrence: US)
  Receive Date: 20230330
  Receipt Date: 20230606
  Transmission Date: 20230722
  Serious: No
  Sender: FDA-Public Use
  Company Number: US-ELI_LILLY_AND_COMPANY-US202303015755

PATIENT
  Age: 44 Year
  Sex: Female

DRUGS (4)
  1. MOUNJARO [Suspect]
     Active Substance: TIRZEPATIDE
     Indication: Product used for unknown indication
     Dosage: 12.5 MG, UNKNOWN
     Route: 065
  2. MOUNJARO [Suspect]
     Active Substance: TIRZEPATIDE
     Indication: Product used for unknown indication
     Dosage: 12.5 MG, UNKNOWN
     Route: 065
  3. MOUNJARO [Suspect]
     Active Substance: TIRZEPATIDE
     Dosage: 12.5 MG, UNKNOWN
     Route: 065
  4. MOUNJARO [Suspect]
     Active Substance: TIRZEPATIDE
     Dosage: 12.5 MG, UNKNOWN
     Route: 065

REACTIONS (6)
  - Incorrect dose administered [Unknown]
  - Weight increased [Not Recovered/Not Resolved]
  - Feeling abnormal [Not Recovered/Not Resolved]
  - Peripheral swelling [Not Recovered/Not Resolved]
  - Hunger [Not Recovered/Not Resolved]
  - Thirst [Not Recovered/Not Resolved]

NARRATIVE: CASE EVENT DATE: 20230328
